FAERS Safety Report 6238842-2 (Version None)
Quarter: 2009Q2

REPORT INFORMATION
  Report Type: 
  Country: None (occurrence: None)
  Receive Date: 20090622
  Receipt Date: 20090616
  Transmission Date: 20091009
  Serious: Yes (Other)
  Sender: FDA-Public Use
  Company Number: US-JNJFOC-20090605645

PATIENT
  Sex: Male
  Weight: 53.52 kg

DRUGS (4)
  1. TOPAMAX [Suspect]
     Route: 048
  2. TOPAMAX [Suspect]
     Route: 048
  3. TOPAMAX [Suspect]
     Indication: FEBRILE CONVULSION
     Route: 048
  4. DEPAKOTE [Suspect]
     Indication: CONVULSION
     Route: 048

REACTIONS (3)
  - INCREASED APPETITE [None]
  - THYROID FUNCTION TEST ABNORMAL [None]
  - WEIGHT DECREASED [None]
